FAERS Safety Report 21894922 (Version 2)
Quarter: 2024Q1

REPORT INFORMATION
  Report Type: Report from Study
  Country: JP (occurrence: JP)
  Receive Date: 20230122
  Receipt Date: 20240328
  Transmission Date: 20240410
  Serious: Yes (Death, Hospitalization, Other)
  Sender: FDA-Public Use
  Company Number: JP-002147023-NVSJ2021JP012413

PATIENT
  Age: 65 Year
  Sex: Female
  Weight: 56 kg

DRUGS (3)
  1. KYMRIAH [Suspect]
     Active Substance: TISAGENLECLEUCEL
     Indication: Diffuse large B-cell lymphoma recurrent
     Dosage: FULL DOSE ADMINISTERED
     Route: 041
     Dates: start: 20210521, end: 20210521
  2. FLUDARABINE [Concomitant]
     Active Substance: FLUDARABINE PHOSPHATE
     Indication: Lymphodepletion
     Dosage: 75 MG/M2
     Route: 065
     Dates: start: 20210517
  3. TOCILIZUMAB [Concomitant]
     Active Substance: TOCILIZUMAB
     Indication: Prophylaxis
     Dosage: UNK
     Route: 065

REACTIONS (8)
  - Multiple organ dysfunction syndrome [Fatal]
  - Cytomegalovirus infection [Not Recovered/Not Resolved]
  - Hypogammaglobulinaemia [Not Recovered/Not Resolved]
  - White blood cell count decreased [Not Recovered/Not Resolved]
  - Platelet count decreased [Not Recovered/Not Resolved]
  - Neutrophil count decreased [Not Recovered/Not Resolved]
  - Lymphocyte count decreased [Not Recovered/Not Resolved]
  - Haemoglobin decreased [Unknown]

NARRATIVE: CASE EVENT DATE: 20210623
